FAERS Safety Report 8952620 (Version 1)
Quarter: 2012Q4

REPORT INFORMATION
  Report Type: 
  Country: US (occurrence: US)
  Receive Date: 20121205
  Receipt Date: 20121205
  Transmission Date: 20130627
  Serious: No
  Sender: FDA-Public Use
  Company Number: US-VERTEX PHARMACEUTICALS INC.-2012-025566

PATIENT
  Sex: Male
  Weight: 118 kg

DRUGS (7)
  1. VX-950 (TELAPREVIR) [Suspect]
     Indication: HEPATITIS C
     Dosage: 750 mg, tid
     Route: 048
     Dates: start: 20120912
  2. RIBAVIRIN [Concomitant]
     Indication: HEPATITIS C
     Dosage: 600 mg, bid
     Route: 048
     Dates: start: 20120912
  3. PEGASYS [Concomitant]
     Indication: HEPATITIS C
     Dosage: 180 ?g, qw
     Route: 058
     Dates: start: 20120912
  4. LISINOPRIL [Concomitant]
     Dosage: 10 mg, UNK
  5. METHADONE [Concomitant]
     Dosage: 10 mg, UNK
     Route: 048
     Dates: start: 20120914
  6. NORVASC [Concomitant]
     Dosage: 10 mg, UNK
     Route: 048
     Dates: start: 20120914
  7. FOLIC ACID [Concomitant]
     Dosage: 1 mg, UNK
     Route: 048
     Dates: start: 20120914

REACTIONS (1)
  - Depression [Unknown]
